FAERS Safety Report 26011080 (Version 1)
Quarter: 2025Q4

REPORT INFORMATION
  Report Type: Spontaneous
  Country: AZ (occurrence: AZ)
  Receive Date: 20251107
  Receipt Date: 20251107
  Transmission Date: 20260118
  Serious: Yes (Death, Other)
  Sender: NOVARTIS
  Company Number: AZ-002147023-NVSC2025AZ170590

PATIENT
  Age: 49 Year
  Sex: Male

DRUGS (1)
  1. GLIVEC [Suspect]
     Active Substance: IMATINIB MESYLATE
     Indication: Philadelphia positive acute lymphocytic leukaemia
     Dosage: 400 MG
     Route: 065

REACTIONS (2)
  - Cardiac failure acute [Fatal]
  - Sepsis [Fatal]

NARRATIVE: CASE EVENT DATE: 20250408
